FAERS Safety Report 13362781 (Version 3)
Quarter: 2019Q2

REPORT INFORMATION
  Report Type: Report from Study
  Country: US (occurrence: US)
  Receive Date: 20170323
  Receipt Date: 20190401
  Transmission Date: 20190711
  Serious: Yes (Other)
  Sender: FDA-Public Use
  Company Number: US-VANDA PHARMACEUTICALS, INC-2017TASUS001550

PATIENT
  Age: 45 Year
  Sex: Male

DRUGS (1)
  1. HETLIOZ [Suspect]
     Active Substance: TASIMELTEON
     Indication: NON-24-HOUR SLEEP-WAKE DISORDER
     Dosage: 20 MG, QD (NIGHTLY)
     Route: 048
     Dates: start: 20170301, end: 20170322

REACTIONS (4)
  - Suicidal ideation [Unknown]
  - Depression [Unknown]
  - Mood altered [Unknown]
  - Agitation [Unknown]

NARRATIVE: CASE EVENT DATE: 2017
